FAERS Safety Report 19577707 (Version 1)
Quarter: 2021Q3

REPORT INFORMATION
  Report Type: Spontaneous
  Country: US (occurrence: US)
  Receive Date: 20210719
  Receipt Date: 20210719
  Transmission Date: 20211014
  Serious: No
  Sender: FDA-Public Use
  Company Number: US-PFIZER INC-2021336104

PATIENT
  Age: 5 Decade
  Sex: Male

DRUGS (1)
  1. BESPONSA [Suspect]
     Active Substance: INOTUZUMAB OZOGAMICIN
     Indication: NEOPLASM
     Dosage: UNK, CYCLIC

REACTIONS (2)
  - Platelet count decreased [Unknown]
  - COVID-19 [Unknown]
